FAERS Safety Report 9332425 (Version 2)
Quarter: 2013Q2

REPORT INFORMATION
  Report Type: Spontaneous
  Country: US (occurrence: None)
  Receive Date: 20130603
  Receipt Date: 20130618
  Transmission Date: 20140414
  Serious: Yes (Death)
  Sender: FDA-Public Use
  Company Number: AUR-APL-2013-04398

PATIENT
  Age: 39 Year
  Sex: Male

DRUGS (10)
  1. ZOLPIDEM [Suspect]
     Indication: PRODUCT USED FOR UNKNOWN INDICATION
  2. HYDROCODONE (HYDROCODONE) [Suspect]
     Indication: PRODUCT USED FOR UNKNOWN INDICATION
  3. MORPHINE SULFATE [Suspect]
     Indication: PRODUCT USED FOR UNKNOWN INDICATION
  4. CODEINE (CODEINE) [Concomitant]
  5. CLONAZEPAM (CLONAZEPAM) [Concomitant]
  6. FLUOXETINE (FLUOXETINE) [Concomitant]
  7. SERTRALINE (SERTRALINE) [Concomitant]
  8. VENLAFAXINE (VENLAFAXINE) [Concomitant]
  9. OLANZAPINE (OLANZAPINE) [Concomitant]
  10. METOPROLOL (METOPROLOL) [Concomitant]

REACTIONS (9)
  - Accidental overdose [None]
  - Unresponsive to stimuli [None]
  - Drug abuse [None]
  - Coronary artery stenosis [None]
  - Arteriosclerosis [None]
  - Cardiomegaly [None]
  - Accidental death [None]
  - Myocardial fibrosis [None]
  - Toxicity to various agents [None]
